FAERS Safety Report 13416358 (Version 2)
Quarter: 2017Q4

REPORT INFORMATION
  Report Type: Spontaneous
  Country: US (occurrence: US)
  Receive Date: 20170407
  Receipt Date: 20171115
  Transmission Date: 20180320
  Serious: No
  Sender: FDA-Public Use
  Company Number: US-LUNDBECK-DKLU2028314

PATIENT
  Age: 85 Year
  Sex: Male

DRUGS (1)
  1. NORTHERA [Suspect]
     Active Substance: DROXIDOPA
     Indication: PRODUCT USED FOR UNKNOWN INDICATION
     Dosage: SCHEDULE B WITH TITRATION COMPLETE
     Route: 065
     Dates: start: 20170306

REACTIONS (6)
  - Fatigue [Unknown]
  - Feeling abnormal [Recovering/Resolving]
  - Heart rate irregular [Unknown]
  - Blood pressure fluctuation [Unknown]
  - Dizziness [Unknown]
  - Drug dose omission [Recovered/Resolved]

NARRATIVE: CASE EVENT DATE: 20170310
